FAERS Safety Report 4795069-9 (Version None)
Quarter: 2005Q4

REPORT INFORMATION
  Report Type: 
  Country: None (occurrence: None)
  Receive Date: 20051007
  Receipt Date: 20051007
  Transmission Date: 20060501
  Serious: No
  Sender: FDA-Public Use
  Company Number: None

PATIENT
  Sex: Male

DRUGS (1)
  1. METFORMIN  850 MG CARACO [Suspect]
     Indication: DIABETES MELLITUS
     Dosage: 850 MG BID PO
     Route: 048
     Dates: start: 20050817, end: 20051005

REACTIONS (1)
  - BLOOD ALKALINE PHOSPHATASE INCREASED [None]
